FAERS Safety Report 4588945-3 (Version None)
Quarter: 2005Q1

REPORT INFORMATION
  Report Type: 
  Country: None (occurrence: None)
  Receive Date: 20050216
  Receipt Date: 20050201
  Transmission Date: 20050727
  Serious: Yes (Hospitalization)
  Sender: FDA-Public Use
  Company Number: USA050289665

PATIENT
  Age: 50 Year
  Sex: Female

DRUGS (8)
  1. CYMBALTA [Suspect]
     Indication: DEPRESSION
     Dosage: 60 MG DAY
     Dates: start: 20041216, end: 20050105
  2. WELLBUTRIN [Concomitant]
  3. ADVAIR DISKUS 100/50 [Concomitant]
  4. ALBUTEROL [Concomitant]
  5. AVELOX [Concomitant]
  6. DIOVAN [Concomitant]
  7. FLONASE [Concomitant]
  8. SINGULAIR (MONTELUKAST) [Concomitant]

REACTIONS (7)
  - ANGIONEUROTIC OEDEMA [None]
  - EOSINOPHIL COUNT INCREASED [None]
  - HYPERSENSITIVITY [None]
  - PRURITUS [None]
  - PYREXIA [None]
  - RED BLOOD CELL SEDIMENTATION RATE INCREASED [None]
  - TREATMENT NONCOMPLIANCE [None]
